FAERS Safety Report 15634910 (Version 1)
Quarter: 2018Q4

REPORT INFORMATION
  Report Type: Report from Study
  Country: US (occurrence: US)
  Receive Date: 20181119
  Receipt Date: 20181119
  Transmission Date: 20190205
  Serious: Yes (Other)
  Sender: FDA-Public Use
  Company Number: PHEH2018US047161

PATIENT
  Sex: Female

DRUGS (1)
  1. KISQALI [Suspect]
     Active Substance: RIBOCICLIB
     Indication: MALIGNANT NEOPLASM PROGRESSION
     Dosage: QD
     Route: 048

REACTIONS (4)
  - Fatigue [Unknown]
  - Nausea [Unknown]
  - Dysgeusia [Unknown]
  - Cancer pain [Unknown]
